FAERS Safety Report 10052707 (Version 4)
Quarter: 2014Q4

REPORT INFORMATION
  Report Type: Spontaneous
  Country: IT (occurrence: IT)
  Receive Date: 20140402
  Receipt Date: 20141017
  Transmission Date: 20150528
  Serious: Yes (Death, Hospitalization, Other)
  Sender: FDA-Public Use
  Company Number: IT-PFIZER INC-2014090882

PATIENT
  Age: 59 Year
  Sex: Female
  Weight: 54 kg

DRUGS (9)
  1. EUTIROX [Concomitant]
     Active Substance: LEVOTHYROXINE SODIUM
  2. LEXOTAN [Concomitant]
     Active Substance: BROMAZEPAM
     Dosage: 15 DROPS X 3
  3. TARDYFER [Concomitant]
     Active Substance: FERROUS SULFATE\FERROUS SULFATE, DRIED
     Dosage: 1 TABLET, UNK
  4. EFFEXOR [Concomitant]
     Active Substance: VENLAFAXINE HYDROCHLORIDE
     Dosage: 1 DF, 3 YEARS
     Route: 048
  5. TAVOR [Concomitant]
     Active Substance: LORAZEPAM
     Dosage: 1 MG, UNK
  6. INDERAL [Concomitant]
     Active Substance: PROPRANOLOL HYDROCHLORIDE
     Dosage: 1/2 X2
  7. SUTENT [Suspect]
     Active Substance: SUNITINIB MALATE
     Indication: CLEAR CELL RENAL CELL CARCINOMA
     Dosage: 37.5 MG, DAILY (4 WEEKS ON/ 2 WEEKS OFF)
     Dates: start: 20140103, end: 20140301
  8. DIBASE [Concomitant]
     Active Substance: CHOLECALCIFEROL
     Dosage: 10000 IU, WEEKLY
  9. HYDROCHLOROTHIAZIDE\VALSARTAN [Concomitant]
     Active Substance: HYDROCHLOROTHIAZIDE\VALSARTAN
     Dosage: 80 MG, 3 YEARS

REACTIONS (17)
  - Disseminated intravascular coagulation [Fatal]
  - Hypertensive heart disease [Unknown]
  - Anaemia [Unknown]
  - Hypothermia [Unknown]
  - Metabolic acidosis [Fatal]
  - Hepatitis fulminant [Fatal]
  - Hyperkalaemia [Fatal]
  - Somnolence [Unknown]
  - Tachypnoea [Unknown]
  - Clear cell renal cell carcinoma [Unknown]
  - Hypoglycaemia [Fatal]
  - Asthenia [Unknown]
  - Acute respiratory failure [Unknown]
  - Hypothyroidism [Unknown]
  - Disease progression [Unknown]
  - Disturbance in attention [Unknown]
  - Hypotension [Unknown]

NARRATIVE: CASE EVENT DATE: 20140214
